FAERS Safety Report 16472092 (Version 2)
Quarter: 2019Q3

REPORT INFORMATION
  Report Type: Spontaneous
  Country: DE (occurrence: DE)
  Receive Date: 20190625
  Receipt Date: 20190706
  Transmission Date: 20191004
  Serious: Yes (Other)
  Sender: FDA-Public Use
  Company Number: DE-SUN PHARMACEUTICAL INDUSTRIES LTD-2019RR-211383

PATIENT
  Age: 68 Year
  Sex: Male

DRUGS (2)
  1. TEMODAL [Suspect]
     Active Substance: TEMOZOLOMIDE
     Indication: NEUROENDOCRINE TUMOUR
     Dosage: 200 MILLIGRAM/SQ. METER, 1DOSE/MONTH
     Route: 048
  2. [177LU] LUTETIUM-DOTATATE [Suspect]
     Active Substance: LUTETIUM OXODOTREOTIDE LU-177
     Indication: NEUROENDOCRINE TUMOUR
     Route: 065

REACTIONS (3)
  - Disease progression [Unknown]
  - Nausea [Unknown]
  - Therapy partial responder [Unknown]
